FAERS Safety Report 10111707 (Version 1)
Quarter: 2014Q2

REPORT INFORMATION
  Report Type: Spontaneous
  Country: US (occurrence: US)
  Receive Date: 20140425
  Receipt Date: 20140425
  Transmission Date: 20141212
  Serious: Yes (Other)
  Sender: FDA-Public Use
  Company Number: US-SHIRE-US201401347

PATIENT
  Age: 15 Year
  Sex: Female

DRUGS (7)
  1. PENTASA [Suspect]
     Indication: CROHN^S DISEASE
     Dosage: 50 MG/KG, 1X/DAY:QD
     Route: 048
  2. PENTASA [Suspect]
     Indication: ENTEROCOLITIS
  3. REMICADE [Suspect]
     Indication: CROHN^S DISEASE
     Dosage: 5 MG/KG, OTHER (EVERY EIGHT WEEKS)
     Route: 042
  4. REMICADE [Suspect]
     Indication: ENTEROCOLITIS
     Dosage: 10 MG/KG, OTHER (EVERY EIGHT WEEKS)
     Route: 042
  5. REMICADE [Suspect]
     Dosage: 10 MG/KG, OTHER (ADMINISTRATION GRADUALLY SHORTENED TO EVERY 4 WKS)
     Route: 042
  6. CORTICOSTEROIDS [Concomitant]
     Indication: CROHN^S DISEASE
     Dosage: UNK, UNKNOWN
     Route: 065
  7. CORTICOSTEROIDS [Concomitant]
     Indication: ENTEROCOLITIS

REACTIONS (6)
  - Nephropathy [Recovering/Resolving]
  - Mesangioproliferative glomerulonephritis [Recovering/Resolving]
  - Focal segmental glomerulosclerosis [Recovering/Resolving]
  - Tubulointerstitial nephritis [Recovering/Resolving]
  - Crohn^s disease [Unknown]
  - Off label use [Recovered/Resolved]
